FAERS Safety Report 18911197 (Version 5)
Quarter: 2021Q2

REPORT INFORMATION
  Report Type: Report from Study
  Country: US (occurrence: US)
  Receive Date: 20210218
  Receipt Date: 20210530
  Transmission Date: 20210717
  Serious: Yes (Life-Threatening)
  Sender: FDA-Public Use
  Company Number: NVSC2021US030218

PATIENT
  Age: 37 Year
  Sex: Male

DRUGS (1)
  1. KESIMPTA [Suspect]
     Active Substance: OFATUMUMAB
     Indication: MULTIPLE SCLEROSIS
     Dosage: 20 MG
     Route: 058
     Dates: start: 20210202

REACTIONS (12)
  - Feeling abnormal [Recovered/Resolved]
  - Hypoaesthesia [Not Recovered/Not Resolved]
  - Weight decreased [Unknown]
  - Influenza [Recovered/Resolved]
  - Fatigue [Unknown]
  - Muscle tightness [Not Recovered/Not Resolved]
  - Injection site pain [Unknown]
  - Nasopharyngitis [Recovered/Resolved]
  - Thirst [Recovered/Resolved]
  - Injection site irritation [Unknown]
  - Headache [Unknown]
  - Pain [Recovered/Resolved]

NARRATIVE: CASE EVENT DATE: 20210202
